FAERS Safety Report 20947721 (Version 3)
Quarter: 2022Q2

REPORT INFORMATION
  Report Type: Spontaneous
  Country: US (occurrence: US)
  Receive Date: 20220611
  Receipt Date: 20220622
  Transmission Date: 20220720
  Serious: Yes (Hospitalization)
  Sender: FDA-Public Use
  Company Number: US-UNITED THERAPEUTICS-UNT-2022-012331

PATIENT
  Sex: Female
  Weight: 103.4 kg

DRUGS (5)
  1. REMODULIN [Suspect]
     Active Substance: TREPROSTINIL
     Indication: Pulmonary arterial hypertension
     Dosage: UNK, CONTINUING
     Route: 058
     Dates: start: 20220527
  2. REMODULIN [Suspect]
     Active Substance: TREPROSTINIL
     Dosage: 0.0028 ?G/KG, CONTINUING (PRE-FILLED WITH 2 ML PER CASSETTE. RATE OF 20 MCL PER HOUR)
     Route: 058
     Dates: end: 20220601
  3. REMODULIN [Suspect]
     Active Substance: TREPROSTINIL
     Dosage: 0.009 ?G/KG, CONTINUING
     Route: 058
     Dates: start: 20220601
  4. REMODULIN [Suspect]
     Active Substance: TREPROSTINIL
     Indication: Pulmonary arterial hypertension
     Dosage: 0.018 ?G/KG, CONTINUING
     Route: 058
     Dates: start: 20220613
  5. WARFARIN SODIUM [Concomitant]
     Active Substance: WARFARIN SODIUM
     Indication: Product used for unknown indication
     Dosage: UNK
     Route: 065

REACTIONS (8)
  - Accidental overdose [Recovered/Resolved]
  - Infusion site pain [Unknown]
  - Diarrhoea [Unknown]
  - Nausea [Unknown]
  - Device power source issue [Unknown]
  - Device failure [Unknown]
  - Device issue [Unknown]
  - Circumstance or information capable of leading to device use error [Unknown]

NARRATIVE: CASE EVENT DATE: 20220101
